FAERS Safety Report 7410767-6 (Version None)
Quarter: 2011Q2

REPORT INFORMATION
  Report Type: 
  Country: None (occurrence: None)
  Receive Date: 20110405
  Receipt Date: 20110322
  Transmission Date: 20111010
  Serious: Yes (Hospitalization)
  Sender: FDA-Public Use
  Company Number: FK201100545

PATIENT
  Age: 37 Year
  Sex: Female

DRUGS (7)
  1. METHYLPREDNISOLONE SODIUM SUCCINATE INJECTION, USP (METHYLPREDNISOLONE [Suspect]
     Indication: STEROID THERAPY
     Dosage: SEE IMAGE
     Route: 040
  2. METHYLPREDNISOLONE SODIUM SUCCINATE INJECTION, USP (METHYLPREDNISOLONE [Suspect]
     Indication: STEROID THERAPY
     Dosage: SEE IMAGE
     Route: 040
  3. METHYLPREDNISOLONE SODIUM SUCCINATE INJECTION, USP (METHYLPREDNISOLONE [Suspect]
     Indication: STEROID THERAPY
     Dosage: SEE IMAGE
     Route: 040
  4. METHYLPREDNISOLONE SODIUM SUCCINATE INJECTION, USP (METHYLPREDNISOLONE [Suspect]
     Indication: STEROID THERAPY
     Dosage: SEE IMAGE
     Route: 040
  5. TACROLIMUS [Concomitant]
  6. AZATHIOPRINE [Concomitant]
  7. PREDNISONE [Concomitant]

REACTIONS (4)
  - COLITIS [None]
  - CLOSTRIDIAL INFECTION [None]
  - CULTURE STOOL POSITIVE [None]
  - PANCYTOPENIA [None]
